FAERS Safety Report 6993643-2 (Version None)
Quarter: 2010Q3

REPORT INFORMATION
  Report Type: 
  Country: None (occurrence: None)
  Receive Date: 20100917
  Receipt Date: 20070911
  Transmission Date: 20110219
  Serious: Yes (Other)
  Sender: FDA-Public Use
  Company Number: US-ASTRAZENECA-2007UW12091

PATIENT
  Age: 19109 Day
  Sex: Female
  Weight: 102.1 kg

DRUGS (23)
  1. SEROQUEL [Suspect]
     Indication: SCHIZOPHRENIA
     Dosage: 25MG-300MG
     Route: 048
     Dates: start: 20021002
  2. SEROQUEL [Suspect]
     Indication: BIPOLAR DISORDER
     Dosage: 25MG-300MG
     Route: 048
     Dates: start: 20021002
  3. SEROQUEL [Suspect]
     Indication: DEPRESSION
     Dosage: 25MG-300MG
     Route: 048
     Dates: start: 20021002
  4. SEROQUEL [Suspect]
     Route: 048
     Dates: start: 20020901, end: 20050101
  5. SEROQUEL [Suspect]
     Route: 048
     Dates: start: 20020901, end: 20050101
  6. SEROQUEL [Suspect]
     Route: 048
     Dates: start: 20020901, end: 20050101
  7. RISPERDAL [Concomitant]
     Indication: SCHIZOPHRENIA
     Route: 048
     Dates: start: 20010101, end: 20050101
  8. RISPERDAL [Concomitant]
     Indication: BIPOLAR DISORDER
     Route: 048
     Dates: start: 20010101, end: 20050101
  9. RISPERDAL [Concomitant]
     Indication: DEPRESSION
     Route: 048
     Dates: start: 20010101, end: 20050101
  10. RISPERDAL [Concomitant]
     Dosage: 1MG-2MG
     Dates: start: 20011205
  11. RISPERDAL [Concomitant]
     Dosage: 1MG-2MG
     Dates: start: 20011205
  12. RISPERDAL [Concomitant]
     Dosage: 1MG-2MG
     Dates: start: 20011205
  13. ABILIFY [Concomitant]
     Route: 048
     Dates: start: 20030101, end: 20050101
  14. ZYPREXA [Concomitant]
     Indication: SCHIZOPHRENIA
     Route: 048
     Dates: start: 20011201, end: 20021101
  15. NITROGLYCERIN [Concomitant]
     Dosage: 0.5 MG TO 2 MG
     Dates: start: 20010512
  16. TRICOR [Concomitant]
     Dates: start: 20030509
  17. LIPITOR [Concomitant]
     Dosage: 20 MG TO 40 MG
     Dates: start: 20030509
  18. ACTOS [Concomitant]
     Dates: start: 20030509
  19. PAXIL [Concomitant]
  20. NEXIUM [Concomitant]
     Dates: start: 20011205
  21. METOPROLOL [Concomitant]
     Dosage: 100MG ONE HALF BID
     Dates: start: 20011205
  22. ASPIRIN [Concomitant]
     Dates: start: 20010512
  23. ZOCOR [Concomitant]
     Dosage: 20MG-40MG
     Dates: start: 20010512

REACTIONS (5)
  - DIABETES INSIPIDUS [None]
  - DIABETES MELLITUS [None]
  - DIABETES MELLITUS INADEQUATE CONTROL [None]
  - PERIPHERAL ARTERIAL OCCLUSIVE DISEASE [None]
  - TYPE 2 DIABETES MELLITUS [None]
